FAERS Safety Report 5275901-5 (Version None)
Quarter: 2007Q1

REPORT INFORMATION
  Report Type: 
  Country: None (occurrence: None)
  Receive Date: 20070326
  Receipt Date: 20070315
  Transmission Date: 20070707
  Serious: Yes (Hospitalization)
  Sender: FDA-Public Use
  Company Number: JP-MERCK-0702USA03746

PATIENT
  Age: 63 Year
  Sex: Male

DRUGS (11)
  1. PEPCID RPD [Suspect]
     Indication: GASTRIC ULCER
     Route: 048
     Dates: start: 20040911, end: 20060824
  2. DILTIAZEM HCL [Suspect]
     Indication: HYPERTENSION
     Route: 048
     Dates: start: 20040911, end: 20060708
  3. SELBEX [Suspect]
     Indication: GASTRIC ULCER
     Route: 048
     Dates: start: 20040911, end: 20070215
  4. URSO [Concomitant]
     Indication: CHOLELITHIASIS
     Route: 048
     Dates: start: 20040911, end: 20060708
  5. FRANDOL [Concomitant]
     Indication: MYOCARDIAL INFARCTION
     Route: 048
     Dates: start: 20040911, end: 20060708
  6. ASPIRIN [Concomitant]
     Route: 048
     Dates: start: 20040911, end: 20060708
  7. LIPOVAS [Concomitant]
     Route: 048
     Dates: start: 20040911, end: 20060708
  8. TANATRIL [Concomitant]
     Indication: HYPERTENSION
     Route: 048
     Dates: start: 20040911, end: 20060708
  9. METOPROLOL TARTRATE [Concomitant]
     Route: 048
     Dates: start: 20040911, end: 20061010
  10. LASIX [Concomitant]
     Indication: HYPERTENSION
     Route: 048
     Dates: start: 20040911, end: 20060708
  11. ALDACTONE [Concomitant]
     Indication: HYPERTENSION
     Route: 048
     Dates: start: 20040911, end: 20060708

REACTIONS (1)
  - DRUG ERUPTION [None]
